FAERS Safety Report 19489209 (Version 1)
Quarter: 2021Q3

REPORT INFORMATION
  Report Type: Spontaneous
  Country: DE (occurrence: DE)
  Receive Date: 20210703
  Receipt Date: 20210703
  Transmission Date: 20211014
  Serious: Yes (Death, Hospitalization)
  Sender: FDA-Public Use
  Company Number: DE-TEVA-2021-DE-1928347

PATIENT
  Age: 70 Year
  Sex: Female
  Weight: 59 kg

DRUGS (13)
  1. ACICLOVIR [Concomitant]
     Active Substance: ACYCLOVIR
     Dosage: 1600 MILLIGRAM DAILY;  1?0?1?0,
     Route: 048
  2. ENOXAPARIN [Concomitant]
     Active Substance: ENOXAPARIN
     Dosage: 6000 IU (INTERNATIONAL UNIT) DAILY;   0?0?1?0,
     Route: 058
  3. ZINKOXID [Concomitant]
     Dosage: 2 TO 3 TIMES A DAY,
     Route: 003
  4. CANDESARTAN. [Concomitant]
     Active Substance: CANDESARTAN
     Dosage: 16 MILLIGRAM DAILY;   1?0?0?0,
     Route: 048
  5. GABAPENTIN. [Suspect]
     Active Substance: GABAPENTIN
     Route: 065
  6. BISOPROLOL [Concomitant]
     Active Substance: BISOPROLOL
     Dosage: 10 MILLIGRAM DAILY;  1?0?1?0,
     Route: 048
  7. MOXONIDIN [Concomitant]
     Active Substance: MOXONIDINE
     Dosage: .3 MILLIGRAM DAILY;   0?0?1?0,
     Route: 048
  8. ACETYLSALICYLSAURE [Concomitant]
     Active Substance: ASPIRIN
     Dosage: 100 MILLIGRAM DAILY;  0?0?1?0,
     Route: 048
  9. CINACALCET. [Concomitant]
     Active Substance: CINACALCET
     Dosage: 30 MG, 4 TIMES A WEEK,
     Route: 048
  10. DIHYDRALAZIN [Concomitant]
     Active Substance: DIHYDRALAZINE SULFATE
     Dosage: 25 MG ,  UP TO 4 TIMES A DAY DEPENDING ON THE RR,
     Route: 048
  11. ASCORBINSAURE (VITAMIN C)/BIOTIN/CALCIUMPANTOTHENAT/CYANOCOBALAMIN (VI [Concomitant]
     Dosage: ON DAYS WITHOUT DIALYSIS,
     Route: 048
  12. SIMVASTATIN. [Concomitant]
     Active Substance: SIMVASTATIN
     Dosage: 40 MILLIGRAM DAILY;  0?0?1?0,
     Route: 048
  13. OMEPRAZOL [Concomitant]
     Active Substance: OMEPRAZOLE
     Dosage: 80 MILLIGRAM DAILY;  1?0?1?0,
     Route: 048

REACTIONS (4)
  - Headache [Unknown]
  - Herpes zoster [Unknown]
  - Language disorder [Unknown]
  - Dizziness [Unknown]
